FAERS Safety Report 12768438 (Version 3)
Quarter: 2016Q3

REPORT INFORMATION
  Report Type: Spontaneous
  Country: RU (occurrence: RU)
  Receive Date: 20160921
  Receipt Date: 20160930
  Transmission Date: 20161109
  Serious: Yes (Hospitalization, Other)
  Sender: FDA-Public Use
  Company Number: RU-ASTRAZENECA-2016SE88132

PATIENT
  Age: 74 Year
  Sex: Female
  Weight: 68 kg

DRUGS (7)
  1. ATORVASTATIN [Concomitant]
     Active Substance: ATORVASTATIN
  2. BRILINTA [Suspect]
     Active Substance: TICAGRELOR
     Indication: STENT PLACEMENT
     Route: 048
     Dates: start: 20160514
  3. CARDIOMAGNY [Concomitant]
     Dates: end: 20160813
  4. VALSARTAN. [Suspect]
     Active Substance: VALSARTAN
     Route: 065
  5. BRILINTA [Suspect]
     Active Substance: TICAGRELOR
     Indication: MYOCARDIAL INFARCTION
     Route: 048
     Dates: start: 20160514
  6. BISOPROLOL [Concomitant]
     Active Substance: BISOPROLOL
  7. THROMBO ASS [Concomitant]
     Active Substance: ASPIRIN
     Dates: start: 20160813

REACTIONS (9)
  - Vascular stent occlusion [Unknown]
  - Carotid arteriosclerosis [Unknown]
  - Blood pressure abnormal [Not Recovered/Not Resolved]
  - Contusion [Recovering/Resolving]
  - Diarrhoea [Not Recovered/Not Resolved]
  - Respiratory tract infection viral [Unknown]
  - Nausea [Not Recovered/Not Resolved]
  - Bradycardia [Unknown]
  - Abdominal pain [Not Recovered/Not Resolved]

NARRATIVE: CASE EVENT DATE: 201607
